FAERS Safety Report 23999994 (Version 1)
Quarter: 2024Q2

REPORT INFORMATION
  Report Type: Spontaneous
  Country: US (occurrence: None)
  Receive Date: 20240621
  Receipt Date: 20240621
  Transmission Date: 20240716
  Serious: Yes (Hospitalization)
  Sender: FDA-Public Use
  Company Number: None

PATIENT
  Sex: Female
  Weight: 88.8 kg

DRUGS (2)
  1. XELODA [Suspect]
     Active Substance: CAPECITABINE
     Dates: end: 20240531
  2. OXALIPLATIN [Suspect]
     Active Substance: OXALIPLATIN
     Dates: end: 20240522

REACTIONS (3)
  - Lethargy [None]
  - Sedation [None]
  - Toxic encephalopathy [None]

NARRATIVE: CASE EVENT DATE: 20240614
